FAERS Safety Report 14433818 (Version 9)
Quarter: 2018Q2

REPORT INFORMATION
  Report Type: Report from Study
  Country: US (occurrence: US)
  Receive Date: 20180124
  Receipt Date: 20180524
  Transmission Date: 20180711
  Serious: Yes (Hospitalization)
  Sender: FDA-Public Use
  Company Number: US-ACTELION-A-US2017-149353

PATIENT
  Age: 65 Year
  Sex: Female
  Weight: 58.96 kg

DRUGS (5)
  1. ADCIRCA [Concomitant]
     Active Substance: TADALAFIL
  2. TYVASO [Concomitant]
     Active Substance: TREPROSTINIL
     Dosage: 12 BREATHS, QID
     Route: 055
  3. VELETRI [Suspect]
     Active Substance: EPOPROSTENOL
     Indication: PULMONARY HYPERTENSION
     Dosage: 10 NG/KG, PER MIN
     Route: 042
  4. VELETRI [Suspect]
     Active Substance: EPOPROSTENOL
     Dosage: 50 NG/KG, PER MIN
     Route: 042
     Dates: start: 20130520
  5. OPSUMIT [Suspect]
     Active Substance: MACITENTAN
     Indication: PULMONARY HYPERTENSION
     Dosage: 10 MG, QD
     Route: 048
     Dates: start: 20150911

REACTIONS (29)
  - Upper respiratory tract congestion [Unknown]
  - Rales [Unknown]
  - Biopsy skin [Unknown]
  - Nasopharyngitis [Unknown]
  - Headache [Unknown]
  - Drug dose omission [Unknown]
  - Herpes zoster [Unknown]
  - Rhinorrhoea [Unknown]
  - Crepitations [Unknown]
  - Nasal congestion [Unknown]
  - Oedema peripheral [Unknown]
  - Dizziness [Unknown]
  - Lung disorder [Unknown]
  - Central venous catheterisation [Unknown]
  - Catheter site erosion [Unknown]
  - Abdominal distension [Unknown]
  - Haemorrhage [Unknown]
  - Jugular vein distension [Unknown]
  - Infection [Unknown]
  - Rash [Unknown]
  - Dyspnoea [Unknown]
  - Haemoptysis [Unknown]
  - Throat irritation [Unknown]
  - Dyspnoea exertional [Unknown]
  - Device use issue [Unknown]
  - Catheter site discharge [Unknown]
  - Productive cough [Unknown]
  - Decreased appetite [Unknown]
  - Oxygen saturation decreased [Unknown]
